FAERS Safety Report 4815530-8 (Version None)
Quarter: 2005Q4

REPORT INFORMATION
  Report Type: 
  Country: None (occurrence: None)
  Receive Date: 20051031
  Receipt Date: 20050513
  Transmission Date: 20060501
  Serious: Yes (Death, Life-Threatening, Hospitalization, Disabling, Other)
  Sender: FDA-Public Use
  Company Number: DE-BRACCO-BRO-008696

PATIENT
  Sex: Male

DRUGS (12)
  1. MULTIHANCE [Suspect]
     Indication: EMBOLIC STROKE
     Route: 042
     Dates: start: 20050501, end: 20050501
  2. MULTIHANCE [Suspect]
     Indication: NUCLEAR MAGNETIC RESONANCE IMAGING BRAIN
     Route: 042
     Dates: start: 20050501, end: 20050501
  3. MAGNEVIST [Suspect]
     Indication: EMBOLIC STROKE
     Route: 042
     Dates: start: 20050501, end: 20050501
  4. MAGNEVIST [Suspect]
     Indication: NUCLEAR MAGNETIC RESONANCE IMAGING BRAIN
     Route: 042
     Dates: start: 20050501, end: 20050501
  5. GADOVIST [Suspect]
     Indication: EMBOLIC STROKE
     Route: 042
     Dates: start: 20050501, end: 20050501
  6. GADOVIST [Suspect]
     Indication: NUCLEAR MAGNETIC RESONANCE IMAGING BRAIN
     Route: 042
     Dates: start: 20050501, end: 20050501
  7. GENTAMICIN [Concomitant]
     Route: 050
     Dates: start: 20050503, end: 20050509
  8. VANCOMYCIN [Concomitant]
     Route: 050
     Dates: start: 20050504, end: 20050509
  9. CEFOTAXIM [Concomitant]
     Route: 050
     Dates: start: 20050501, end: 20050508
  10. CLINDAMYCIN [Concomitant]
     Route: 050
     Dates: start: 20050501, end: 20050507
  11. ANTIEPILETICS [Concomitant]
     Route: 050
  12. OXYGEN [Concomitant]
     Route: 055

REACTIONS (4)
  - DISSEMINATED INTRAVASCULAR COAGULATION [None]
  - MULTI-ORGAN FAILURE [None]
  - RENAL FAILURE ACUTE [None]
  - SEPSIS [None]
